FAERS Safety Report 5066145-0 (Version None)
Quarter: 2006Q3

REPORT INFORMATION
  Report Type: 
  Country: None (occurrence: None)
  Receive Date: 20060725
  Receipt Date: 20060713
  Transmission Date: 20061208
  Serious: Yes (Hospitalization)
  Sender: FDA-Public Use
  Company Number: GXKR2006BR04077

PATIENT
  Age: 50 Year
  Sex: Female

DRUGS (5)
  1. CAPTOPRIL [Suspect]
     Indication: HYPERTENSION
     Dosage: 25 MG
     Dates: start: 19930101, end: 20060101
  2. OMEPRAZOLE [Suspect]
     Indication: STOMACH DISCOMFORT
     Dosage: 20 MG QD
     Dates: start: 19930101
  3. FUROSEMIDE [Suspect]
     Indication: DIURETIC THERAPY
     Dosage: 20 MG QD
     Dates: start: 19930101
  4. ALDACTONE [Suspect]
     Indication: CARDIAC DISORDER
     Dosage: QD
  5. WARFARIN SODIUM [Suspect]
     Indication: ANTICOAGULANT THERAPY
     Dosage: 1 TABL, EVERY 3 DAYS, 1/2 TABL, EVERY 2 DAYS, ORAL
     Route: 048

REACTIONS (2)
  - HYPERTENSION [None]
  - PNEUMONIA [None]
